FAERS Safety Report 7223790-1 (Version None)
Quarter: 2011Q1

REPORT INFORMATION
  Report Type: 
  Country: None (occurrence: None)
  Receive Date: 20110112
  Receipt Date: 20101130
  Transmission Date: 20110831
  Serious: No
  Sender: FDA-Public Use
  Company Number: US-ALLERGAN-1015461US

PATIENT
  Age: 50 Year
  Sex: Male

DRUGS (3)
  1. RESTASIS [Suspect]
     Indication: DRY EYE
     Dosage: 1 GTT, BID
     Route: 047
     Dates: start: 20101118
  2. PATANOL [Concomitant]
     Dosage: UNK
  3. SYSTANE [Concomitant]
     Dosage: BID-TID OR PRN

REACTIONS (4)
  - FOREIGN BODY SENSATION IN EYES [None]
  - MADAROSIS [None]
  - EYE PRURITUS [None]
  - OCULAR HYPERAEMIA [None]
